FAERS Safety Report 16675916 (Version 2)
Quarter: 2022Q3

REPORT INFORMATION
  Report Type: Spontaneous
  Country: US (occurrence: US)
  Receive Date: 20190807
  Receipt Date: 20220713
  Transmission Date: 20221026
  Serious: Yes (Other)
  Sender: FDA-Public Use
  Company Number: US-JNJFOC-20190742858

PATIENT
  Age: 3 Year
  Sex: Female

DRUGS (1)
  1. MOTRIN JUNIOR STRENGTH [Suspect]
     Active Substance: IBUPROFEN
     Indication: Pyrexia
     Route: 048
     Dates: start: 20190728

REACTIONS (3)
  - Vulvovaginal injury [Unknown]
  - Vulvovaginal erythema [Unknown]
  - Urticaria [Unknown]

NARRATIVE: CASE EVENT DATE: 20190729
